FAERS Safety Report 20877093 (Version 1)
Quarter: 2022Q2

REPORT INFORMATION
  Report Type: Spontaneous
  Country: US (occurrence: None)
  Receive Date: 20220526
  Receipt Date: 20220526
  Transmission Date: 20220721
  Serious: No
  Sender: FDA-Public Use
  Company Number: None

PATIENT
  Age: 65 Year
  Sex: Female

DRUGS (1)
  1. NIRMATRELVIR\RITONAVIR [Suspect]
     Active Substance: NIRMATRELVIR\RITONAVIR
     Indication: Upper respiratory tract infection
     Dates: start: 20220518, end: 20220519

REACTIONS (3)
  - Abdominal discomfort [None]
  - Pain [None]
  - Abdominal distension [None]

NARRATIVE: CASE EVENT DATE: 20220519
